FAERS Safety Report 23858506 (Version 1)
Quarter: 2024Q2

REPORT INFORMATION
  Report Type: Spontaneous
  Country: US (occurrence: US)
  Receive Date: 20240515
  Receipt Date: 20240515
  Transmission Date: 20240716
  Serious: No
  Sender: FDA-Public Use
  Company Number: US-PFIZER INC-202400107730

PATIENT
  Age: 14 Year
  Sex: Male

DRUGS (4)
  1. ARGININE HYDROCHLORIDE [Suspect]
     Active Substance: ARGININE HYDROCHLORIDE
     Indication: Growth disorder
     Dosage: 7.85 UG/ML
     Dates: start: 2024
  2. ARGININE HYDROCHLORIDE [Suspect]
     Active Substance: ARGININE HYDROCHLORIDE
     Indication: Blood growth hormone abnormal
  3. CLONIDINE [Suspect]
     Active Substance: CLONIDINE
     Indication: Growth disorder
     Dosage: 10.6 UG/ML
     Dates: start: 2024
  4. CLONIDINE [Suspect]
     Active Substance: CLONIDINE
     Indication: Blood growth hormone abnormal

REACTIONS (1)
  - Loss of therapeutic response [Unknown]

NARRATIVE: CASE EVENT DATE: 20240101
